FAERS Safety Report 7456376-4 (Version None)
Quarter: 2011Q2

REPORT INFORMATION
  Report Type: 
  Country: None (occurrence: None)
  Receive Date: 20110503
  Receipt Date: 20110419
  Transmission Date: 20111010
  Serious: Yes (Hospitalization)
  Sender: FDA-Public Use
  Company Number: US-CELGENEUS-163-21880-11042542

PATIENT
  Sex: Male
  Weight: 67.192 kg

DRUGS (6)
  1. HYDROCODONE BITARTRATE [Concomitant]
     Route: 065
  2. MORPHINE [Concomitant]
     Route: 065
  3. COUMADIN [Concomitant]
     Route: 065
  4. REVLIMID [Suspect]
     Dosage: 25 MILLIGRAM
     Route: 048
     Dates: start: 20110401
  5. PREDNISONE [Concomitant]
     Route: 065
  6. REVLIMID [Suspect]
     Indication: MULTIPLE MYELOMA
     Dosage: 25 MILLIGRAM
     Route: 048
     Dates: start: 20091001

REACTIONS (2)
  - CARDIAC FAILURE [None]
  - ATRIOVENTRICULAR BLOCK [None]
